FAERS Safety Report 6441452-5 (Version None)
Quarter: 2009Q4

REPORT INFORMATION
  Report Type: 
  Country: None (occurrence: None)
  Receive Date: 20091116
  Receipt Date: 20091111
  Transmission Date: 20100525
  Serious: Yes (Death)
  Sender: FDA-Public Use
  Company Number: A0816512A

PATIENT
  Age: 40 Year
  Sex: Male

DRUGS (1)
  1. VENTOLIN [Suspect]
     Indication: ASTHMA
     Dosage: 90MCG FOUR TIMES PER DAY
     Route: 055

REACTIONS (2)
  - BRAIN CANCER METASTATIC [None]
  - DEATH [None]
